FAERS Safety Report 7137710-1 (Version None)
Quarter: 2010Q4

REPORT INFORMATION
  Report Type: 
  Country: None (occurrence: None)
  Receive Date: 20101206
  Receipt Date: 20101126
  Transmission Date: 20110411
  Serious: No
  Sender: FDA-Public Use
  Company Number: KR-JNJFOC-20101108371

PATIENT
  Sex: Female

DRUGS (3)
  1. DURAGESIC-100 [Suspect]
     Indication: PAIN MANAGEMENT
     Dosage: HALF OF 12.5 UG/HR PATCH
     Route: 062
  2. DURAGESIC-100 [Suspect]
     Route: 062
  3. MOTILIUM M [Suspect]
     Indication: ANTIEMETIC SUPPORTIVE CARE
     Route: 048

REACTIONS (2)
  - DIARRHOEA [None]
  - DRUG PRESCRIBING ERROR [None]
